FAERS Safety Report 22365942 (Version 1)
Quarter: 2023Q2

REPORT INFORMATION
  Report Type: Spontaneous
  Country: GB (occurrence: GB)
  Receive Date: 20230525
  Receipt Date: 20230525
  Transmission Date: 20230722
  Serious: Yes (Other)
  Sender: FDA-Public Use
  Company Number: None

PATIENT
  Age: 60 Year
  Sex: Male
  Weight: 118 kg

DRUGS (14)
  1. LOSARTAN [Suspect]
     Active Substance: LOSARTAN
     Indication: Product used for unknown indication
     Dates: start: 20230131
  2. ALLOPURINOL [Concomitant]
     Active Substance: ALLOPURINOL
     Indication: Product used for unknown indication
     Dates: start: 20221003
  3. BETNOVATE [Concomitant]
     Active Substance: BETAMETHASONE
     Indication: Product used for unknown indication
     Dosage: APPLY AT NIGHT
     Route: 061
     Dates: start: 20230309, end: 20230406
  4. CALCIPOTRIENE [Concomitant]
     Active Substance: CALCIPOTRIENE
     Indication: Product used for unknown indication
     Dosage: APPLY IN THE MORNING
     Route: 061
     Dates: start: 20230309, end: 20230406
  5. COLCHICINE [Concomitant]
     Active Substance: COLCHICINE
     Indication: Product used for unknown indication
     Dosage: FOR 3 DAYS AS NE...
  6. EDOXABAN [Concomitant]
     Active Substance: EDOXABAN
     Indication: Anticoagulant therapy
     Dates: start: 20230428
  7. FLUCLOXACILLIN. [Concomitant]
     Indication: Product used for unknown indication
     Dates: start: 20230309, end: 20230316
  8. BECLOMETHASONE\FORMOTEROL [Concomitant]
     Active Substance: BECLOMETHASONE\FORMOTEROL
     Indication: Product used for unknown indication
     Dosage: CAN TAKE A FURTHER 6 P...
     Dates: start: 20221221
  9. HYDROCORTISONE [Concomitant]
     Active Substance: HYDROCORTISONE
     Indication: Product used for unknown indication
     Dosage: APPLY
     Route: 061
     Dates: start: 20230310, end: 20230323
  10. INDAPAMIDE [Concomitant]
     Active Substance: INDAPAMIDE
     Indication: Product used for unknown indication
     Dosage: MORNING
     Dates: start: 20230510
  11. LERCANIDIPINE HYDROCHLORIDE. [Concomitant]
     Indication: Product used for unknown indication
     Dates: start: 20221003
  12. NEBIDO [Concomitant]
     Active Substance: TESTOSTERONE UNDECANOATE
     Indication: Product used for unknown indication
     Dosage: USE AS DIRECTED
     Route: 030
     Dates: start: 20230418, end: 20230419
  13. SOLIFENACIN. [Concomitant]
     Indication: Product used for unknown indication
     Dates: start: 20221003
  14. TERBINAFINE [Concomitant]
     Active Substance: TERBINAFINE
     Indication: Product used for unknown indication
     Dosage: MONTH AT A TIME
     Dates: start: 20230221, end: 20230321

REACTIONS (1)
  - Eczema [Recovered/Resolved]
